FAERS Safety Report 4896501-2 (Version None)
Quarter: 2006Q1

REPORT INFORMATION
  Report Type: 
  Country: None (occurrence: None)
  Receive Date: 20060131
  Receipt Date: 20060125
  Transmission Date: 20060701
  Serious: Yes (Other)
  Sender: FDA-Public Use
  Company Number: US-GLAXOSMITHKLINE-A0591182A

PATIENT
  Sex: Female

DRUGS (4)
  1. ADVAIR DISKUS 100/50 [Suspect]
     Indication: ASTHMA
     Route: 055
  2. SINGULAIR [Concomitant]
  3. SPIRIVA [Concomitant]
  4. PROVENTIL [Concomitant]
     Route: 055

REACTIONS (4)
  - APHONIA [None]
  - CATARACT [None]
  - DYSPHONIA [None]
  - ORAL CANDIDIASIS [None]
